FAERS Safety Report 17047791 (Version 3)
Quarter: 2020Q1

REPORT INFORMATION
  Report Type: Spontaneous
  Country: US (occurrence: US)
  Receive Date: 20191119
  Receipt Date: 20200130
  Transmission Date: 20200409
  Serious: Yes (Disabling)
  Sender: FDA-Public Use
  Company Number: US-PFIZER INC-2019018520

PATIENT
  Age: 34 Year
  Sex: Male

DRUGS (3)
  1. DILANTIN [Suspect]
     Active Substance: PHENYTOIN
     Dosage: 200 MG, DAILY(SIG: 1 IN AM AND 3 IN PM)
  2. DILANTIN [Suspect]
     Active Substance: PHENYTOIN
     Dosage: 50 MG, UNK
  3. DILANTIN [Suspect]
     Active Substance: PHENYTOIN
     Indication: SEIZURE
     Dosage: 200 MG, DAILY (ONE TABLET IN THE MORNING AND THREE TABLETS AT NIGHT)
     Route: 048

REACTIONS (3)
  - Mental disability [Unknown]
  - Off label use [Unknown]
  - Product use issue [Unknown]
